FAERS Safety Report 5176561-4 (Version None)
Quarter: 2006Q4

REPORT INFORMATION
  Report Type: 
  Country: None (occurrence: None)
  Receive Date: 20061207
  Receipt Date: 20061127
  Transmission Date: 20070319
  Serious: Yes (Other)
  Sender: FDA-Public Use
  Company Number: 2005038583

PATIENT
  Sex: Female

DRUGS (5)
  1. DEPO-PROVERA [Suspect]
     Indication: CONTRACEPTION
     Dosage: 150 MG (150 MG, 1ST INJECTION)
     Dates: start: 20030101, end: 20030101
  2. DEPO-PROVERA [Suspect]
     Indication: CONTRACEPTION
     Dosage: 150 MG (150 MG, 1ST INJECTION)
     Dates: start: 20040101, end: 20040101
  3. TINIDAZOLE/TIOCONAZOLE                (TIOCONAZOLE, TINIDAZOLE) [Suspect]
     Indication: VAGINAL INFLAMMATION
     Dosage: 1 IN 1 D, TOPICAL
     Route: 061
     Dates: start: 20000101
  4. TINIDAZOLE/TIOCONAZOLE                (TIOCONAZOLE, TINIDAZOLE) [Suspect]
     Indication: VAGINAL INFLAMMATION
     Dosage: 1 IN 1 D, TOPICAL
     Route: 061
     Dates: start: 20060201
  5. VASOPRIL                     (ENALAPRIL MALEATE) [Concomitant]

REACTIONS (7)
  - AMENORRHOEA [None]
  - BLOOD GLUCOSE INCREASED [None]
  - LOW DENSITY LIPOPROTEIN INCREASED [None]
  - OSTEOPENIA [None]
  - THYROIDITIS [None]
  - VAGINAL HAEMORRHAGE [None]
  - WEIGHT INCREASED [None]
